FAERS Safety Report 4804650-X (Version None)
Quarter: 2005Q4

REPORT INFORMATION
  Report Type: 
  Country: None (occurrence: None)
  Receive Date: 20051020
  Receipt Date: 20051010
  Transmission Date: 20060501
  Serious: Yes (Other)
  Sender: FDA-Public Use
  Company Number: BE-SANOFI-SYNTHELABO-A01200507142

PATIENT
  Age: 75 Year
  Sex: Male

DRUGS (12)
  1. PLAVIX [Suspect]
     Indication: INFARCTION
     Dosage: UNK
     Route: 048
     Dates: start: 20050601
  2. SPIRIVA [Concomitant]
     Indication: ASTHMA
     Dosage: UNK
     Route: 065
  3. SPIRIVA [Concomitant]
     Indication: BRONCHITIS CHRONIC
     Dosage: UNK
     Route: 065
  4. FORADIL [Concomitant]
     Indication: ASTHMA
     Dosage: UNK
     Route: 065
  5. FORADIL [Concomitant]
     Indication: BRONCHITIS CHRONIC
     Dosage: UNK
     Route: 065
  6. DILTIAZEM HCL [Concomitant]
     Indication: HYPERTENSION
     Dosage: UNK
     Route: 065
  7. MEDROL [Concomitant]
     Indication: ASTHMA
     Dosage: UNK
     Route: 065
  8. MEDROL [Concomitant]
     Indication: BRONCHITIS CHRONIC
     Dosage: UNK
     Route: 065
  9. ZOCOR [Concomitant]
     Indication: DRUG USE FOR UNKNOWN INDICATION
     Dosage: UNK
     Route: 065
  10. ASPIRIN [Concomitant]
     Indication: DRUG USE FOR UNKNOWN INDICATION
     Dosage: UNK
     Route: 065
  11. MIFLONIDE [Concomitant]
     Indication: ASTHMA
     Dosage: UNK
     Route: 065
  12. MIFLONIDE [Concomitant]
     Indication: BRONCHITIS CHRONIC
     Dosage: UNK
     Route: 065

REACTIONS (2)
  - DYSPNOEA [None]
  - LUNG DISORDER [None]
